FAERS Safety Report 24442002 (Version 3)
Quarter: 2025Q1

REPORT INFORMATION
  Report Type: Spontaneous
  Country: US (occurrence: US)
  Receive Date: 20241016
  Receipt Date: 20250123
  Transmission Date: 20250409
  Serious: No
  Sender: BRISTOL-MYERS SQUIBB COMPANY
  Company Number: US-BRISTOL-MYERS SQUIBB COMPANY-2024-162878

PATIENT
  Age: 55 Year
  Sex: Female

DRUGS (2)
  1. ORENCIA [Suspect]
     Active Substance: ABATACEPT
     Indication: Rheumatoid arthritis
     Route: 058
     Dates: start: 202302
  2. ORENCIA [Suspect]
     Active Substance: ABATACEPT
     Dosage: DOSE: 125MG/ML
     Route: 058
     Dates: start: 202302

REACTIONS (2)
  - Joint swelling [Unknown]
  - Arthralgia [Unknown]
